FAERS Safety Report 24039628 (Version 4)
Quarter: 2025Q1

REPORT INFORMATION
  Report Type: Report from Study
  Country: CA (occurrence: CA)
  Receive Date: 20240702
  Receipt Date: 20250110
  Transmission Date: 20250408
  Serious: Yes (Other)
  Sender: GLAXOSMITHKLINE
  Company Number: CA-GLAXOSMITHKLINE-CA2024017799

PATIENT

DRUGS (15)
  1. BELIMUMAB [Suspect]
     Active Substance: BELIMUMAB
     Indication: Lupus nephritis
     Dosage: 200 MG, WE
     Route: 058
     Dates: start: 20221028
  2. BELIMUMAB [Suspect]
     Active Substance: BELIMUMAB
     Indication: Lupus nephritis
     Dosage: 200 MG, WE
     Route: 058
  3. BELIMUMAB [Suspect]
     Active Substance: BELIMUMAB
     Indication: Lupus nephritis
     Dosage: 200 MG, WE
     Route: 058
  4. BELIMUMAB [Suspect]
     Active Substance: BELIMUMAB
     Indication: Lupus nephritis
     Dosage: 200 MG, WE
     Route: 058
  5. PREDNISONE [Concomitant]
     Active Substance: PREDNISONE
     Indication: Product used for unknown indication
  6. ACTONEL [Concomitant]
     Active Substance: RISEDRONATE SODIUM
     Indication: Product used for unknown indication
  7. ALVESCO [Concomitant]
     Active Substance: CICLESONIDE
     Indication: Product used for unknown indication
  8. ASPIRIN [Concomitant]
     Active Substance: ASPIRIN
     Indication: Product used for unknown indication
  9. ATARAX [Concomitant]
     Active Substance: HYDROXYZINE HYDROCHLORIDE
     Indication: Product used for unknown indication
  10. Atasol [Concomitant]
     Indication: Product used for unknown indication
  11. CYCLOBENZAPRINE [Concomitant]
     Active Substance: CYCLOBENZAPRINE
     Indication: Product used for unknown indication
  12. NASONEX [Concomitant]
     Active Substance: MOMETASONE FUROATE
     Indication: Product used for unknown indication
  13. PANTOPRAZOLE SODIUM [Concomitant]
     Active Substance: PANTOPRAZOLE SODIUM
     Indication: Product used for unknown indication
  14. VENTOLIN [Concomitant]
     Active Substance: ALBUTEROL SULFATE
     Indication: Product used for unknown indication
  15. ZOPICLONE [Concomitant]
     Active Substance: ZOPICLONE
     Indication: Product used for unknown indication

REACTIONS (7)
  - Nephrolithiasis [Recovered/Resolved]
  - Cough [Not Recovered/Not Resolved]
  - Rheumatic disorder [Unknown]
  - Viral infection [Unknown]
  - Influenza [Unknown]
  - Injection site pain [Recovered/Resolved]
  - Inappropriate schedule of product administration [Unknown]

NARRATIVE: CASE EVENT DATE: 20240401
